FAERS Safety Report 9916760 (Version 2)
Quarter: 2014Q1

REPORT INFORMATION
  Report Type: Spontaneous
  Country: JP (occurrence: JP)
  Receive Date: 20140221
  Receipt Date: 20140221
  Transmission Date: 20141002
  Serious: Yes (Other)
  Sender: FDA-Public Use
  Company Number: JP-PFIZER INC-2014027176

PATIENT
  Age: 85 Year
  Sex: Female

DRUGS (9)
  1. LYRICA [Suspect]
     Dosage: 100 MG, UNK
     Route: 048
     Dates: start: 20131004
  2. LYRICA [Suspect]
     Dosage: 25 MG, 4X/DAY
     Route: 048
     Dates: start: 20131231, end: 20140113
  3. LYRICA [Suspect]
     Dosage: 25 MG, 5X/DAY
     Route: 048
     Dates: start: 20140114
  4. CYMBALTA [Suspect]
     Dosage: UNK
     Route: 048
  5. AMARYL [Concomitant]
     Dosage: UNK
  6. CILOSTAZOL [Concomitant]
     Dosage: UNK
  7. TANATRIL [Concomitant]
     Dosage: UNK
  8. LIVALO [Concomitant]
     Dosage: UNK
  9. REZALTAS [Concomitant]
     Dosage: UNK

REACTIONS (2)
  - Dementia [Unknown]
  - Abnormal behaviour [Not Recovered/Not Resolved]
